FAERS Safety Report 14350836 (Version 3)
Quarter: 2018Q1

REPORT INFORMATION
  Report Type: Spontaneous
  Country: US (occurrence: US)
  Receive Date: 20180104
  Receipt Date: 20180214
  Transmission Date: 20180509
  Serious: Yes (Hospitalization, Other)
  Sender: FDA-Public Use
  Company Number: US-PFIZER INC-2018000340

PATIENT
  Age: 80 Year
  Sex: Male

DRUGS (8)
  1. DILTIAZEM. [Concomitant]
     Active Substance: DILTIAZEM
     Indication: HYPERTENSION
     Dosage: 60 MG, 2X/DAY
     Route: 048
     Dates: start: 201705
  2. FUROSEMIDE. [Concomitant]
     Active Substance: FUROSEMIDE
     Indication: FLUID RETENTION
     Dosage: 40 MG, 1X/DAY
     Route: 048
     Dates: start: 201705
  3. REVATIO [Suspect]
     Active Substance: SILDENAFIL CITRATE
     Indication: LUNG DISORDER
     Dosage: 20 MG, 3X/DAY
  4. MULTIVITAMIN [Concomitant]
     Active Substance: VITAMINS
     Indication: SUPPLEMENTATION THERAPY
     Dosage: 1 DF, 1X/DAY
     Route: 048
  5. ASPIRIN. [Concomitant]
     Active Substance: ASPIRIN
     Dosage: 81 MG, 1X/DAY
     Route: 048
  6. METHIMAZOLE. [Concomitant]
     Active Substance: METHIMAZOLE
     Indication: THYROID DISORDER
     Dosage: 5MG TABLET. HE TAKES 1/2 TABLET BY MOUTH ONCE DAILY
     Route: 048
  7. REVATIO [Suspect]
     Active Substance: SILDENAFIL CITRATE
     Indication: CARDIAC DISORDER
     Dosage: 20 MG, 3X/DAY
     Dates: start: 2017
  8. METHIMAZOLE. [Concomitant]
     Active Substance: METHIMAZOLE
     Dosage: UNK  (2.5 MG = 1/2 TABLETS)

REACTIONS (7)
  - Memory impairment [Recovered/Resolved]
  - Weight decreased [Unknown]
  - Constipation [Not Recovered/Not Resolved]
  - Product use in unapproved indication [Not Recovered/Not Resolved]
  - Thrombosis [Recovered/Resolved]
  - Swelling [Recovered/Resolved]
  - Dyspnoea [Recovered/Resolved]

NARRATIVE: CASE EVENT DATE: 20170510
